FAERS Safety Report 8366181-2 (Version None)
Quarter: 2012Q2

REPORT INFORMATION
  Report Type: 
  Country: None (occurrence: None)
  Receive Date: 20120515
  Receipt Date: 20120503
  Transmission Date: 20120825
  Serious: Yes (Disabling)
  Sender: FDA-Public Use
  Company Number: DSM-2012-00540

PATIENT
  Age: 6 Decade
  Sex: Female

DRUGS (1)
  1. OLMESARTAN MEDOXOMIL [Suspect]
     Indication: HYPERTENSION
     Dosage: 10 MG, ORAL
     Route: 048
     Dates: start: 20120308, end: 20120312

REACTIONS (3)
  - PHARYNGEAL OEDEMA [None]
  - APHONIA [None]
  - SPEECH DISORDER [None]
